FAERS Safety Report 6535502-5 (Version None)
Quarter: 2010Q1

REPORT INFORMATION
  Report Type: 
  Country: None (occurrence: None)
  Receive Date: 20100111
  Receipt Date: 20100111
  Transmission Date: 20100710
  Serious: Yes (Other)
  Sender: FDA-Public Use
  Company Number: None

PATIENT
  Sex: Female
  Weight: 92.9874 kg

DRUGS (1)
  1. NITROFUR MAC [Suspect]
     Indication: URINARY TRACT INFECTION
     Dosage: 1 CAPSULE 100MG TWICE EACH DAY BY MOUTH
     Route: 048
     Dates: start: 20091210, end: 20091213

REACTIONS (8)
  - ABASIA [None]
  - ASTHENIA [None]
  - BLOOD GLUCOSE INCREASED [None]
  - HEADACHE [None]
  - HYPERTENSION [None]
  - INSOMNIA [None]
  - NAUSEA [None]
  - RENAL FAILURE [None]
